FAERS Safety Report 14047802 (Version 1)
Quarter: 2017Q4

REPORT INFORMATION
  Report Type: Spontaneous
  Country: US (occurrence: US)
  Receive Date: 20171005
  Receipt Date: 20171005
  Transmission Date: 20180321
  Serious: Yes (Other)
  Sender: FDA-Public Use
  Company Number: None

PATIENT
  Age: 63 Year
  Sex: Female
  Weight: 66.6 kg

DRUGS (7)
  1. IC TIZANIDINE HCL 4 MG TABLET [Suspect]
     Active Substance: TIZANIDINE HYDROCHLORIDE
     Indication: CONCUSSION
     Dosage: ?          QUANTITY:1 TABLET(S);?
     Route: 048
     Dates: start: 20170929, end: 20170930
  2. IC TIZANIDINE HCL 4 MG TABLET [Suspect]
     Active Substance: TIZANIDINE HYDROCHLORIDE
     Indication: HEADACHE
     Dosage: ?          QUANTITY:1 TABLET(S);?
     Route: 048
     Dates: start: 20170929, end: 20170930
  3. SYNTHROID [Concomitant]
     Active Substance: LEVOTHYROXINE SODIUM
  4. METHYLPREDNISOLONE TABLETS,UPS 4 MG [Suspect]
     Active Substance: METHYLPREDNISOLONE
     Indication: CONCUSSION
     Dosage: ?          QUANTITY:21 TABLET(S);OTHER FREQUENCY:6 TABLETS, TAPERIN;?
     Route: 048
     Dates: start: 20170929, end: 20171004
  5. METHYLPREDNISOLONE TABLETS,UPS 4 MG [Suspect]
     Active Substance: METHYLPREDNISOLONE
     Indication: HEADACHE
     Dosage: ?          QUANTITY:21 TABLET(S);OTHER FREQUENCY:6 TABLETS, TAPERIN;?
     Route: 048
     Dates: start: 20170929, end: 20171004
  6. SIMVASTATIN. [Concomitant]
     Active Substance: SIMVASTATIN
  7. VITAMIN D3 [Concomitant]
     Active Substance: CHOLECALCIFEROL

REACTIONS (11)
  - Heart rate increased [None]
  - Dyspnoea [None]
  - Muscle twitching [None]
  - Dry mouth [None]
  - Insomnia [None]
  - Hypertension [None]
  - Apparent death [None]
  - Paranoia [None]
  - Hallucination [None]
  - Asthenia [None]
  - Nausea [None]

NARRATIVE: CASE EVENT DATE: 20171004
